FAERS Safety Report 18963173 (Version 1)
Quarter: 2021Q1

REPORT INFORMATION
  Report Type: Spontaneous
  Country: US (occurrence: US)
  Receive Date: 20210303
  Receipt Date: 20210303
  Transmission Date: 20210420
  Serious: Yes (Other)
  Sender: FDA-Public Use
  Company Number: None

PATIENT
  Sex: Male
  Weight: 129.6 kg

DRUGS (8)
  1. AMLODIPINE [Concomitant]
     Active Substance: AMLODIPINE BESYLATE
  2. LUPRON [Concomitant]
     Active Substance: LEUPROLIDE ACETATE
  3. VITAMIN B12 [Concomitant]
     Active Substance: CYANOCOBALAMIN
  4. VITAMIN D3 [Concomitant]
     Active Substance: CHOLECALCIFEROL
  5. TAMSULOSIN [Concomitant]
     Active Substance: TAMSULOSIN
  6. ABIRATERONE. [Suspect]
     Active Substance: ABIRATERONE ACETATE
     Indication: PROSTATE CANCER
     Dates: start: 20201111
  7. PREDNISONE. [Concomitant]
     Active Substance: PREDNISONE
  8. PROVENGE [Concomitant]
     Active Substance: SIPULEUCEL-T

REACTIONS (1)
  - Disease progression [None]
